FAERS Safety Report 6619140-1 (Version None)
Quarter: 2010Q1

REPORT INFORMATION
  Report Type: 
  Country: None (occurrence: None)
  Receive Date: 20100305
  Receipt Date: 20100305
  Transmission Date: 20100710
  Serious: Yes (Disabling)
  Sender: FDA-Public Use
  Company Number: None

PATIENT
  Sex: Male
  Weight: 85.2 kg

DRUGS (1)
  1. WARFARIN SODIUM [Suspect]
     Indication: DEEP VEIN THROMBOSIS
     Dosage: 2.5 MG DAILY PO, ONCE
     Route: 048
     Dates: start: 20100301, end: 20100301

REACTIONS (2)
  - ENTEROCUTANEOUS FISTULA [None]
  - INTERNATIONAL NORMALISED RATIO INCREASED [None]
